FAERS Safety Report 10038445 (Version 1)
Quarter: 2014Q1

REPORT INFORMATION
  Report Type: Spontaneous
  Country: US (occurrence: US)
  Receive Date: 20140326
  Receipt Date: 20140326
  Transmission Date: 20141002
  Serious: No
  Sender: FDA-Public Use
  Company Number: US-009507513-1403USA011830

PATIENT
  Age: 39 Year
  Sex: Female

DRUGS (2)
  1. NUVARING [Suspect]
     Dosage: 3 WEEKS IN, 1 WEEK OUT, 1 RING
     Route: 067
     Dates: start: 2007
  2. NUVARING [Suspect]
     Dosage: UNK
     Route: 067

REACTIONS (3)
  - Incorrect drug administration duration [Unknown]
  - Inappropriate schedule of drug administration [Unknown]
  - Drug administration error [Unknown]
